FAERS Safety Report 23465094 (Version 2)
Quarter: 2024Q2

REPORT INFORMATION
  Report Type: Spontaneous
  Country: US (occurrence: US)
  Receive Date: 20240201
  Receipt Date: 20240623
  Transmission Date: 20240716
  Serious: No
  Sender: FDA-Public Use
  Company Number: US-GSK-US2024010019

PATIENT
  Sex: Female

DRUGS (1)
  1. BENLYSTA [Suspect]
     Active Substance: BELIMUMAB
     Indication: Systemic lupus erythematosus
     Dosage: UNK (BENLYSTA INTRAVENOUS SOLUTION RECONSTITUTED 640 MG)

REACTIONS (2)
  - Inability to afford medication [Unknown]
  - Product dose omission issue [Unknown]
